FAERS Safety Report 6411824-3 (Version None)
Quarter: 2009Q4

REPORT INFORMATION
  Report Type: 
  Country: None (occurrence: None)
  Receive Date: 20091020
  Receipt Date: 20091020
  Transmission Date: 20100525
  Serious: Yes (Hospitalization)
  Sender: FDA-Public Use
  Company Number: 090902-000084

PATIENT
  Age: 23 Year
  Sex: Female

DRUGS (1)
  1. PROACTIV CLEANSER, GUTHY-RENKER [Suspect]
     Indication: ACNE
     Dosage: PER LABEL, TOPICAL
     Route: 061
     Dates: start: 20090527, end: 20090527

REACTIONS (3)
  - INFECTION [None]
  - SCAR [None]
  - SWELLING [None]
